FAERS Safety Report 21503377 (Version 2)
Quarter: 2022Q4

REPORT INFORMATION
  Report Type: Report from Study
  Country: US (occurrence: US)
  Receive Date: 20221025
  Receipt Date: 20221220
  Transmission Date: 20230113
  Serious: Yes (Hospitalization, Other)
  Sender: FDA-Public Use
  Company Number: US-ORG100014127-2022001192

PATIENT
  Age: 65 Year
  Sex: Female

DRUGS (11)
  1. LYSODREN [Suspect]
     Active Substance: MITOTANE
     Indication: Adrenocortical carcinoma
     Dosage: 06 TABLETS EVERY MORNING AND 05 TABLETS EVERY EVENING
     Route: 048
     Dates: start: 20220318, end: 202209
  2. ACETAMINOPHEN 500 MG TABLETS [Concomitant]
     Indication: Product used for unknown indication
  3. ATORVASTATIN [Concomitant]
     Active Substance: ATORVASTATIN
     Indication: Product used for unknown indication
  4. CALCIUM CARBONATE [Concomitant]
     Active Substance: CALCIUM CARBONATE
     Indication: Product used for unknown indication
  5. ENOXAPARIN 40MG/0 4ML SYR(10X0.4ML) [Concomitant]
     Indication: Product used for unknown indication
  6. HYDROCORTISONE 20MG TABLETS [Concomitant]
     Indication: Product used for unknown indication
  7. IRBESARTAN [Concomitant]
     Active Substance: IRBESARTAN
     Indication: Product used for unknown indication
  8. LABETALOL 300MG TABLETS [Concomitant]
     Indication: Product used for unknown indication
  9. PANTOPRAZOLE 20MG TABLETS [Concomitant]
     Indication: Product used for unknown indication
  10. SPIRONOLACTONE 25MG TABLETS [Concomitant]
     Indication: Product used for unknown indication
  11. VITAMIN D 2000 IU TABLETS [Concomitant]
     Indication: Product used for unknown indication

REACTIONS (3)
  - Electrolyte imbalance [Unknown]
  - Diarrhoea [Unknown]
  - Drug ineffective [Unknown]

NARRATIVE: CASE EVENT DATE: 20220926
